FAERS Safety Report 24218448 (Version 1)
Quarter: 2024Q3

REPORT INFORMATION
  Report Type: Spontaneous
  Country: US (occurrence: US)
  Receive Date: 20240816
  Receipt Date: 20240816
  Transmission Date: 20241016
  Serious: No
  Sender: GLAXOSMITHKLINE
  Company Number: US-GSK-US2024098451

PATIENT
  Age: 82 Year
  Sex: Female
  Weight: 74.84 kg

DRUGS (1)
  1. TRELEGY ELLIPTA [Suspect]
     Active Substance: FLUTICASONE FUROATE\UMECLIDINIUM BROMIDE\VILANTEROL TRIFENATATE
     Indication: Asthma
     Dosage: 200 UG
     Dates: start: 202406, end: 202407

REACTIONS (2)
  - Dysphonia [Unknown]
  - Product use complaint [Unknown]

NARRATIVE: CASE EVENT DATE: 20240601
